FAERS Safety Report 7654791-7 (Version None)
Quarter: 2011Q3

REPORT INFORMATION
  Report Type: 
  Country: None (occurrence: None)
  Receive Date: 20110804
  Receipt Date: 20110729
  Transmission Date: 20111222
  Serious: No
  Sender: FDA-Public Use
  Company Number: US-BIOGENIDEC-2011BI028534

PATIENT
  Age: 41 Year
  Sex: Female

DRUGS (4)
  1. TYSABRI [Suspect]
     Route: 042
     Dates: start: 20070725, end: 20100427
  2. TYSABRI [Suspect]
     Indication: MULTIPLE SCLEROSIS
     Route: 042
     Dates: start: 20101111
  3. VICODIN [Concomitant]
     Indication: BACK PAIN
  4. VICODIN [Concomitant]
     Indication: PAIN IN EXTREMITY

REACTIONS (2)
  - BACK PAIN [None]
  - PAIN IN EXTREMITY [None]
